FAERS Safety Report 9207534 (Version 3)
Quarter: 2013Q2

REPORT INFORMATION
  Report Type: Report from Study
  Country: FR (occurrence: FR)
  Receive Date: 20130403
  Receipt Date: 20130416
  Transmission Date: 20140414
  Serious: Yes (Death, Other)
  Sender: FDA-Public Use
  Company Number: FR-PFIZER INC-2011305078

PATIENT
  Age: 77 Year
  Sex: Male

DRUGS (11)
  1. BLINDED PLACEBO [Suspect]
     Indication: HEPATIC CANCER
     Dosage: 37.5 MG, 1X/DAY
     Dates: start: 20111017, end: 20111113
  2. SUNITINIB MALATE [Suspect]
     Indication: HEPATIC CANCER
     Dosage: 37.5 MG, 1X/DAY
     Dates: start: 20111017, end: 20111113
  3. DOXORUBICIN HCL [Suspect]
     Indication: HEPATIC CANCER
     Dosage: UNK
  4. METFORMINE PFIZER [Suspect]
     Dosage: 1 DF, 3X/DAY
  5. OMIX [Concomitant]
     Dosage: 1 DF, 1X/DAY
  6. OGAST [Concomitant]
     Dosage: 1 DF, 1X/DAY
  7. VASTAREL [Concomitant]
     Dosage: 1 DF, 3X/DAY
  8. PULMICORT [Concomitant]
     Dosage: 1 DF, 2X/DAY
  9. VOLTARENE [Concomitant]
     Dosage: 1 DF, 2X/DAY
  10. AMLOR [Concomitant]
     Dosage: 1 DF, 1X/DAY
  11. LAMALINE [Concomitant]
     Indication: PAIN
     Dosage: UNK

REACTIONS (9)
  - Decreased appetite [Not Recovered/Not Resolved]
  - Pneumonia [Recovered/Resolved]
  - Dehydration [None]
  - Tachypnoea [None]
  - Sepsis [None]
  - Renal failure [None]
  - Hepatic encephalopathy [None]
  - Oxygen saturation decreased [None]
  - Neurological decompensation [None]
